FAERS Safety Report 7563622-5 (Version None)
Quarter: 2011Q2

REPORT INFORMATION
  Report Type: 
  Country: None (occurrence: None)
  Receive Date: 20110622
  Receipt Date: 20110608
  Transmission Date: 20111010
  Serious: Yes (Other)
  Sender: FDA-Public Use
  Company Number: US-JNJFOC-20110604283

PATIENT
  Sex: Female
  Weight: 48 kg

DRUGS (4)
  1. PREVACID [Concomitant]
  2. FERROUS SULFATE TAB [Concomitant]
  3. REMICADE [Suspect]
     Indication: INFLAMMATORY BOWEL DISEASE
     Route: 042
     Dates: start: 20110603
  4. POTASSIUM CHLORIDE [Concomitant]

REACTIONS (1)
  - VISION BLURRED [None]
